FAERS Safety Report 4756884-0 (Version None)
Quarter: 2005Q3

REPORT INFORMATION
  Report Type: 
  Country: None (occurrence: None)
  Receive Date: 20050830
  Receipt Date: 20050613
  Transmission Date: 20060218
  Serious: No
  Sender: FDA-Public Use
  Company Number: US-GLAXOSMITHKLINE-A0562422A

PATIENT
  Sex: Male

DRUGS (2)
  1. AVODART [Suspect]
     Indication: BENIGN PROSTATIC HYPERPLASIA
     Route: 048
  2. NO CONCURRENT MEDICATION [Concomitant]

REACTIONS (1)
  - CONTUSION [None]
